FAERS Safety Report 8041441-3 (Version None)
Quarter: 2012Q1

REPORT INFORMATION
  Report Type: 
  Country: None (occurrence: None)
  Receive Date: 20120112
  Receipt Date: 20120104
  Transmission Date: 20120608
  Serious: Yes (Hospitalization)
  Sender: FDA-Public Use
  Company Number: BG-PFIZER INC-2012001836

PATIENT
  Age: 69 Year
  Sex: Male
  Weight: 92 kg

DRUGS (6)
  1. SOLU-MEDROL [Suspect]
     Indication: PREMEDICATION
     Dosage: 80 MG, 1X/DAY
     Route: 042
     Dates: start: 20111228, end: 20111229
  2. SOTAHEXAL [Concomitant]
     Indication: ARRHYTHMIA PROPHYLAXIS
     Dosage: 160 MG, 2X/DAY
     Route: 048
     Dates: start: 20020101
  3. INOTUZUMAB OZOGAMICIN [Suspect]
     Indication: NON-HODGKIN'S LYMPHOMA
     Dosage: 3.85 MG, UNK
     Route: 042
     Dates: start: 20111229, end: 20111229
  4. CLARINASE [Concomitant]
     Indication: PREMEDICATION
     Dosage: UNK
     Route: 048
     Dates: start: 20111228, end: 20111229
  5. RITUXIMAB [Suspect]
     Indication: NON-HODGKIN'S LYMPHOMA
     Dosage: 800 MG, UNK
     Route: 042
     Dates: start: 20111228, end: 20111228
  6. PARACETAMOL [Concomitant]
     Indication: PREMEDICATION
     Dosage: 500 MG, 1X/DAY
     Route: 048
     Dates: start: 20111228, end: 20111229

REACTIONS (1)
  - ATRIAL FIBRILLATION [None]
